FAERS Safety Report 4432358-1 (Version None)
Quarter: 2004Q3

REPORT INFORMATION
  Report Type: 
  Country: None (occurrence: None)
  Receive Date: 20040818
  Receipt Date: 20040804
  Transmission Date: 20050211
  Serious: Yes (Life-Threatening, Hospitalization)
  Sender: FDA-Public Use
  Company Number: 207892

PATIENT
  Age: 47 Year
  Sex: Female
  Weight: 94.6 kg

DRUGS (6)
  1. RITUXAN(RITUXIMAB) CONC FOR SOLUTION FOR INFUSION [Suspect]
     Indication: NON-HODGKIN'S LYMPHOMA
     Dosage: 743 MG,  INTRAVENOUS
     Route: 042
     Dates: end: 20040701
  2. CYTOXAN [Suspect]
     Indication: NON-HODGKIN'S LYMPHOMA
     Dosage: 1485 MG,  Q2W, INTRAVENOUS
     Route: 042
     Dates: end: 20040701
  3. DOXORUBICIN HCL [Suspect]
     Indication: NON-HODGKIN'S LYMPHOMA
     Dosage: 99 MG, Q2W, INTRAVENOUS
     Route: 042
     Dates: end: 20040708
  4. VINCRISTINE [Suspect]
     Indication: NON-HODGKIN'S LYMPHOMA
     Dosage: 1.92 MG, Q2W, INTRAVENOUS
     Route: 042
     Dates: end: 20040708
  5. PREDNISONE [Concomitant]
  6. NEULASTA (PEGFILIGRASTIM) [Concomitant]

REACTIONS (19)
  - CATHETER BACTERAEMIA [None]
  - CATHETER RELATED COMPLICATION [None]
  - CHILLS [None]
  - CLOSTRIDIUM COLITIS [None]
  - CULTURE WOUND POSITIVE [None]
  - DIARRHOEA [None]
  - HYPERVENTILATION [None]
  - HYPOTENSION [None]
  - HYPOTHERMIA [None]
  - NAUSEA [None]
  - NEUTROPENIA [None]
  - NEUTROPHIL PERCENTAGE INCREASED [None]
  - PLATELET COUNT DECREASED [None]
  - PSEUDOMONAL BACTERAEMIA [None]
  - SEPSIS [None]
  - SERRATIA INFECTION [None]
  - THERAPY NON-RESPONDER [None]
  - WHITE BLOOD CELL COUNT DECREASED [None]
  - WOUND INFECTION PSEUDOMONAS [None]
